FAERS Safety Report 24100374 (Version 1)
Quarter: 2024Q3

REPORT INFORMATION
  Report Type: Report from Study
  Country: GB (occurrence: GB)
  Receive Date: 20240717
  Receipt Date: 20240717
  Transmission Date: 20241017
  Serious: Yes (Hospitalization, Other)
  Sender: SANDOZ
  Company Number: GB-SANDOZ-SDZ2024GB014576

PATIENT
  Sex: Female

DRUGS (1)
  1. HYRIMOZ [Suspect]
     Active Substance: ADALIMUMAB-ADAZ
     Indication: Rheumatoid arthritis
     Dosage: 40 MG, EOW
     Route: 058
     Dates: start: 20240130

REACTIONS (5)
  - Rheumatoid arthritis [Unknown]
  - Intentional self-injury [Unknown]
  - Limb operation [Unknown]
  - Fall [Unknown]
  - Cough [Unknown]
